FAERS Safety Report 4294346-8 (Version None)
Quarter: 2004Q1

REPORT INFORMATION
  Report Type: 
  Country: None (occurrence: None)
  Receive Date: 20040211
  Receipt Date: 20030718
  Transmission Date: 20041129
  Serious: Yes (Hospitalization)
  Sender: FDA-Public Use
  Company Number: A0417452A

PATIENT
  Age: 55 Year
  Sex: Female

DRUGS (4)
  1. MELPHALAN INJECTION (MELPHALAN) [Suspect]
     Indication: MULTIPLE MYELOMA
     Dosage: 300 MG, INTRAVENOUS
     Route: 042
     Dates: start: 20030313, end: 20030313
  2. THALIDOMIDE (THALIDOMIDE) [Suspect]
     Dosage: 50 MG, PER DAY, ORAL
     Route: 048
     Dates: start: 20030401
  3. DEXAMETHASONE [Suspect]
     Indication: MULTIPLE MYELOMA
     Dosage: 20 MG
     Dates: start: 20030401
  4. TRIMETHOPRIM + SULFAMETHOXAZOLE [Suspect]
     Indication: PROPHYLAXIS

REACTIONS (10)
  - DEFAECATION URGENCY [None]
  - DEHYDRATION [None]
  - FAECAL INCONTINENCE [None]
  - FREQUENT BOWEL MOVEMENTS [None]
  - GASTROENTERITIS BACTERIAL [None]
  - HAEMOGLOBIN DECREASED [None]
  - NEUTROPHIL COUNT DECREASED [None]
  - PLATELET COUNT DECREASED [None]
  - STOOLS WATERY [None]
  - WHITE BLOOD CELL COUNT DECREASED [None]
